FAERS Safety Report 8539721-8 (Version None)
Quarter: 2012Q3

REPORT INFORMATION
  Report Type: 
  Country: None (occurrence: None)
  Receive Date: 20120726
  Receipt Date: 20110811
  Transmission Date: 20120928
  Serious: No
  Sender: FDA-Public Use
  Company Number: US-ASTRAZENECA-2010SE24655

PATIENT
  Age: 49 Year
  Sex: Male
  Weight: 89.8 kg

DRUGS (8)
  1. SEROQUEL [Suspect]
     Route: 048
  2. COUMADIN [Concomitant]
  3. SEROQUEL [Suspect]
     Indication: SCHIZOAFFECTIVE DISORDER
     Route: 048
  4. DEPAKOTE [Concomitant]
  5. VISTARIL [Concomitant]
  6. SEROQUEL [Suspect]
     Indication: OBSESSIVE-COMPULSIVE DISORDER
     Route: 048
  7. LUBROX [Concomitant]
  8. SEROQUEL [Suspect]
     Route: 048

REACTIONS (7)
  - WEIGHT INCREASED [None]
  - BLOOD CHOLESTEROL INCREASED [None]
  - LIPIDS INCREASED [None]
  - FAT TISSUE INCREASED [None]
  - BLOOD TRIGLYCERIDES INCREASED [None]
  - TREATMENT NONCOMPLIANCE [None]
  - HIGH DENSITY LIPOPROTEIN DECREASED [None]
